FAERS Safety Report 4996511-0 (Version None)
Quarter: 2006Q2

REPORT INFORMATION
  Report Type: 
  Country: None (occurrence: None)
  Receive Date: 20060509
  Receipt Date: 20060428
  Transmission Date: 20061013
  Serious: Yes (Hospitalization)
  Sender: FDA-Public Use
  Company Number: PHHO2006CL06968

PATIENT
  Age: 75 Year
  Sex: Female

DRUGS (1)
  1. ZELMAC / HTF 919A [Suspect]
     Dosage: UNK, BID
     Route: 048
     Dates: start: 20060301, end: 20060424

REACTIONS (2)
  - HAEMORRHOID OPERATION [None]
  - HAEMORRHOIDS [None]
